FAERS Safety Report 8083453-X (Version None)
Quarter: 2012Q1

REPORT INFORMATION
  Report Type: 
  Country: None (occurrence: None)
  Receive Date: 20120127
  Receipt Date: 20110125
  Transmission Date: 20120608
  Serious: No
  Sender: FDA-Public Use
  Company Number: US-ABBOTT-11P-163-0700747-00

PATIENT
  Sex: Female

DRUGS (17)
  1. LORTAB [Concomitant]
     Indication: FIBROMYALGIA
     Dosage: 10/500 14 HR AS NEEDED
     Route: 048
  2. TRILEPTAL [Concomitant]
     Indication: FIBROMYALGIA
     Route: 048
  3. PROAIR HFA [Concomitant]
     Indication: ASTHMA
     Route: 055
  4. ZOLPIDEM [Concomitant]
     Indication: FATIGUE
  5. METHOTREXATE [Concomitant]
     Indication: RHEUMATOID ARTHRITIS
     Route: 048
  6. HYDROXYCHLOROQUINE SULFATE [Concomitant]
     Indication: RHEUMATOID ARTHRITIS
     Route: 048
  7. TRILEPTAL [Concomitant]
     Indication: DEPRESSION
  8. DICLOFENAC [Concomitant]
     Indication: FIBROMYALGIA
  9. HUMIRA [Suspect]
     Route: 058
     Dates: start: 20100301, end: 20101231
  10. PREDNISONE TAB [Concomitant]
     Indication: BRONCHITIS
     Route: 048
  11. BENTYL [Concomitant]
     Indication: IRRITABLE BOWEL SYNDROME
     Route: 048
  12. DICLOFENAC [Concomitant]
     Indication: RHEUMATOID ARTHRITIS
     Route: 048
  13. CLONAZEPAM [Concomitant]
     Indication: ANXIETY
     Route: 048
  14. HUMIRA [Suspect]
     Indication: RHEUMATOID ARTHRITIS
     Route: 058
     Dates: start: 20090901, end: 20100301
  15. PROZAC [Concomitant]
     Indication: DEPRESSION
     Route: 048
  16. FOLIC ACID [Concomitant]
     Indication: VITAMIN SUPPLEMENTATION
     Route: 048
  17. ZOLPIDEM [Concomitant]
     Indication: INSOMNIA
     Route: 048

REACTIONS (6)
  - BRONCHITIS [None]
  - DRUG INEFFECTIVE [None]
  - RHEUMATOID ARTHRITIS [None]
  - FIBROMYALGIA [None]
  - INJECTION SITE PAIN [None]
  - INJECTION SITE HAEMATOMA [None]
